FAERS Safety Report 20803193 (Version 1)
Quarter: 2022Q2

REPORT INFORMATION
  Report Type: Spontaneous
  Country: US (occurrence: US)
  Receive Date: 20220509
  Receipt Date: 20220509
  Transmission Date: 20220721
  Serious: Yes (Other)
  Sender: FDA-Public Use
  Company Number: US-PFIZER INC-202200655158

PATIENT
  Age: 72 Year
  Sex: Female
  Weight: 63.05 kg

DRUGS (4)
  1. PAXLOVID [Suspect]
     Active Substance: NIRMATRELVIR\RITONAVIR
     Indication: COVID-19 treatment
     Dosage: UNK, 2X/DAY (TOOK THREE IN THE MORNING AND THREE AT NIGHT)
     Dates: start: 20220414, end: 20220418
  2. CALQUENCE [Concomitant]
     Active Substance: ACALABRUTINIB
     Dosage: UNK
  3. MEDROL [Concomitant]
     Active Substance: METHYLPREDNISOLONE
  4. PREDNISONE [Concomitant]
     Active Substance: PREDNISONE

REACTIONS (7)
  - Leukaemia recurrent [Unknown]
  - Sinusitis [Unknown]
  - Ageusia [Unknown]
  - Anosmia [Unknown]
  - Nasal congestion [Unknown]
  - Lymphadenopathy [Unknown]
  - COVID-19 [Unknown]

NARRATIVE: CASE EVENT DATE: 20220424
